FAERS Safety Report 5663304-0 (Version None)
Quarter: 2008Q1

REPORT INFORMATION
  Report Type: 
  Country: None (occurrence: None)
  Receive Date: 20080313
  Receipt Date: 20080304
  Transmission Date: 20080703
  Serious: Yes (Other)
  Sender: FDA-Public Use
  Company Number: DE-ELI_LILLY_AND_COMPANY-DE200803001417

PATIENT
  Sex: Female

DRUGS (5)
  1. BYETTA [Suspect]
     Dosage: 5 UG, 2/D
     Route: 058
     Dates: start: 20071001, end: 20071115
  2. BYETTA [Suspect]
     Dosage: 10 UG, 2/D
     Route: 058
     Dates: start: 20071116, end: 20071127
  3. CIBADREX [Concomitant]
     Dosage: UNK, UNKNOWN
  4. THYRONAJOD [Concomitant]
     Dosage: UNK, UNKNOWN
  5. METOPROLOL TARTRATE [Concomitant]
     Dosage: UNK, UNKNOWN

REACTIONS (2)
  - MALAISE [None]
  - SYNCOPE [None]
